FAERS Safety Report 25163260 (Version 1)
Quarter: 2025Q2

REPORT INFORMATION
  Report Type: Report from Study
  Country: US (occurrence: US)
  Receive Date: 20250404
  Receipt Date: 20250404
  Transmission Date: 20250716
  Serious: Yes (Hospitalization)
  Sender: EISAI
  Company Number: US-Eisai-EC-2025-186929

PATIENT
  Age: 62 Year
  Sex: Female
  Weight: 127 kg

DRUGS (18)
  1. LENVIMA [Suspect]
     Active Substance: LENVATINIB
     Indication: Endometrial cancer
     Dates: start: 20241114, end: 202412
  2. LENVIMA [Suspect]
     Active Substance: LENVATINIB
     Dates: end: 2025
  3. LENVIMA [Suspect]
     Active Substance: LENVATINIB
     Dates: start: 202503, end: 20250319
  4. ONDANSETRON [Concomitant]
     Active Substance: ONDANSETRON
     Indication: Vomiting
  5. ELIQUIS [Concomitant]
     Active Substance: APIXABAN
  6. TRAMADOL [Concomitant]
     Active Substance: TRAMADOL
  7. OXYCODONE [Concomitant]
     Active Substance: OXYCODONE
  8. CIPROFLOXACIN [Concomitant]
     Active Substance: CIPROFLOXACIN
  9. LIDOCAINE\PRILOCAINE [Concomitant]
     Active Substance: LIDOCAINE\PRILOCAINE
  10. ACETAMINOPHEN [Concomitant]
     Active Substance: ACETAMINOPHEN
  11. MIRALAX [Concomitant]
     Active Substance: POLYETHYLENE GLYCOL 3350
  12. VITAMIN D [Concomitant]
     Active Substance: VITAMIN D NOS
  13. OMEPRAZOLE [Concomitant]
     Active Substance: OMEPRAZOLE
  14. COMBIVENT RESPIMAT ALLERGY RELIEF [Concomitant]
  15. PROCHLORPERAZINE [Concomitant]
     Active Substance: PROCHLORPERAZINE
  16. TYLENOL [Concomitant]
     Active Substance: ACETAMINOPHEN
  17. LORATADINE [Concomitant]
     Active Substance: LORATADINE
  18. VOLTAREN [Concomitant]
     Active Substance: DICLOFENAC SODIUM

REACTIONS (1)
  - Cholelithiasis [Unknown]

NARRATIVE: CASE EVENT DATE: 20250318
